FAERS Safety Report 9729101 (Version 2)
Quarter: 2013Q4

REPORT INFORMATION
  Report Type: Spontaneous
  Country: FR (occurrence: FR)
  Receive Date: 20131204
  Receipt Date: 20131220
  Transmission Date: 20140711
  Serious: Yes (Other)
  Sender: FDA-Public Use
  Company Number: PHHY2013FR138346

PATIENT
  Age: 12 Year
  Sex: Female

DRUGS (2)
  1. OMNITROPE [Suspect]
     Indication: GROWTH HORMONE DEFICIENCY
     Dosage: 1.79 MG, QD
     Route: 065
     Dates: start: 201309
  2. OMNITROPE [Suspect]
     Indication: GROWTH RETARDATION

REACTIONS (2)
  - Incorrect product storage [Unknown]
  - Intentional drug misuse [Unknown]
